FAERS Safety Report 10416588 (Version 4)
Quarter: 2014Q3

REPORT INFORMATION
  Report Type: Report from Study
  Country: AU (occurrence: AU)
  Receive Date: 20140828
  Receipt Date: 20140926
  Transmission Date: 20150326
  Serious: Yes (Other)
  Sender: FDA-Public Use
  Company Number: PHHY2014AU095677

PATIENT
  Age: 45 Year
  Sex: Female
  Weight: 61 kg

DRUGS (2)
  1. CLOZARIL [Suspect]
     Active Substance: CLOZAPINE
     Indication: SCHIZOPHRENIA
     Dosage: 350 MG, NOCTE
     Route: 048
     Dates: start: 20111122, end: 20140802
  2. CLOZARIL [Suspect]
     Active Substance: CLOZAPINE
     Indication: SCHIZOPHRENIA
     Dosage: 325 UKN, UNK
     Route: 048
     Dates: start: 19970226

REACTIONS (5)
  - White blood cell count decreased [Recovered/Resolved]
  - Hypersplenism [Unknown]
  - Hepatitis C [Not Recovered/Not Resolved]
  - Neutropenia [Recovered/Resolved]
  - Poor venous access [Unknown]

NARRATIVE: CASE EVENT DATE: 20140801
